FAERS Safety Report 21632686 (Version 1)
Quarter: 2022Q4

REPORT INFORMATION
  Report Type: Spontaneous
  Country: EC (occurrence: EC)
  Receive Date: 20221123
  Receipt Date: 20221123
  Transmission Date: 20230113
  Serious: Yes (Death, Hospitalization, Other)
  Sender: FDA-Public Use
  Company Number: EC-BAXTER-2022BAX023466

PATIENT
  Age: 60 Year
  Sex: Female
  Weight: 76 kg

DRUGS (9)
  1. DIANEAL PD-2 PERITONEAL DIALYSIS SOLUTION WITH DEXTROSE [Suspect]
     Active Substance: CALCIUM CHLORIDE\DEXTROSE\MAGNESIUM CHLORIDE\SODIUM CHLORIDE\SODIUM LACTATE
     Indication: Peritoneal dialysis
     Dosage: 9800 ML PER DAY
     Route: 033
     Dates: start: 20200117
  2. CALCITRIOL [Concomitant]
     Active Substance: CALCITRIOL
     Indication: Product used for unknown indication
     Dosage: 0.5 MCG ONE CAPSULE AFTER A SNACK
     Route: 065
  3. Corubin [Concomitant]
     Indication: Product used for unknown indication
     Dosage: 12.5 MG, HALF TABLET EVERY MORNING
     Route: 065
  4. ELCAL FORTE [Concomitant]
     Indication: Product used for unknown indication
     Dosage: 450 MG,ONE CAPSULE BEFORE LUNCH
     Route: 065
  5. LEVOTHYROXINE SODIUM [Concomitant]
     Active Substance: LEVOTHYROXINE SODIUM
     Indication: Product used for unknown indication
     Dosage: 50 MG, 2 TABLETS BEFORE BREAK FAST
     Route: 065
  6. FERRUM FOL [Concomitant]
     Indication: Product used for unknown indication
     Dosage: ONE TABLET IN EVERY MORNING
     Route: 065
  7. HUMULIN N [Concomitant]
     Active Substance: INSULIN HUMAN
     Indication: Product used for unknown indication
     Dosage: 28 IU AM AND 8 IU PM
     Route: 058
  8. VITA B [Concomitant]
     Indication: Product used for unknown indication
     Dosage: 1 TABLET EVERY MORNING
     Route: 065
  9. ERYTHROPOIETIN [Concomitant]
     Active Substance: ERYTHROPOIETIN
     Indication: Product used for unknown indication
     Dosage: 4000 IU EVERY MONDAY AND FRIDAY
     Route: 058

REACTIONS (4)
  - Acute respiratory failure [Fatal]
  - Pneumonia [Fatal]
  - Agitation [Unknown]
  - Respiratory distress [Unknown]

NARRATIVE: CASE EVENT DATE: 20221023
